FAERS Safety Report 5918078-2 (Version None)
Quarter: 2008Q4

REPORT INFORMATION
  Report Type: 
  Country: None (occurrence: None)
  Receive Date: 20081014
  Receipt Date: 20081003
  Transmission Date: 20090506
  Serious: Yes (Death)
  Sender: FDA-Public Use
  Company Number: JP-PFIZER INC-2008084124

PATIENT
  Sex: Female
  Weight: 51 kg

DRUGS (9)
  1. SU-011,248 [Suspect]
     Indication: RENAL CELL CARCINOMA
     Route: 048
     Dates: start: 20080718, end: 20080807
  2. SERENACE [Concomitant]
     Route: 048
  3. ROHYPNOL [Concomitant]
     Route: 048
  4. RABEPRAZOLE SODIUM [Concomitant]
     Route: 048
  5. AMARYL [Concomitant]
     Route: 048
  6. CYANOCOBALAMIN [Concomitant]
     Route: 048
  7. ADALAT [Concomitant]
     Route: 048
  8. BASEN [Concomitant]
     Route: 048
  9. FLUITRAN [Concomitant]
     Route: 048
     Dates: start: 20080715

REACTIONS (1)
  - CEREBRAL INFARCTION [None]
